FAERS Safety Report 7073986-7 (Version None)
Quarter: 2010Q4

REPORT INFORMATION
  Report Type: 
  Country: None (occurrence: None)
  Receive Date: 20101028
  Receipt Date: 20101028
  Transmission Date: 20110411
  Serious: Yes (Other)
  Sender: FDA-Public Use
  Company Number: None

PATIENT
  Age: 46 Year
  Sex: Female
  Weight: 59.8748 kg

DRUGS (1)
  1. SUNFORGETTABLE SUN PROTECTION SPF 30 COLORESCIENCE [Suspect]
     Indication: PROPHYLAXIS AGAINST SOLAR RADIATION
     Dates: start: 20090415, end: 20101023

REACTIONS (2)
  - COUGH [None]
  - INCORRECT ROUTE OF DRUG ADMINISTRATION [None]
